FAERS Safety Report 7505832-9 (Version None)
Quarter: 2011Q2

REPORT INFORMATION
  Report Type: 
  Country: None (occurrence: None)
  Receive Date: 20110526
  Receipt Date: 20110516
  Transmission Date: 20111010
  Serious: Yes (Other)
  Sender: FDA-Public Use
  Company Number: US-ELI_LILLY_AND_COMPANY-US201009001749

PATIENT
  Sex: Female
  Weight: 55.782 kg

DRUGS (9)
  1. FORTEO [Suspect]
     Indication: OSTEOPOROSIS
     Dosage: 20 UG, DAILY (1/D)
     Route: 058
     Dates: start: 20100819
  2. CALCIUM CARBONATE [Concomitant]
  3. VIT D [Concomitant]
  4. VITAMIN B-12 [Concomitant]
  5. ATENOLOL [Concomitant]
  6. FISH OIL [Concomitant]
  7. OMEPRAZOLE [Concomitant]
  8. FORTEO [Suspect]
     Dosage: 20 UG, DAILY (1/D)
     Route: 058
     Dates: end: 20110320
  9. MULTI-VITAMINS [Concomitant]

REACTIONS (9)
  - DIZZINESS [None]
  - LIVER DISORDER [None]
  - FATIGUE [None]
  - ASTHENIA [None]
  - SPINAL DISORDER [None]
  - SLEEP DISORDER [None]
  - LUNG NEOPLASM [None]
  - CHEMOTHERAPY [None]
  - MUSCULAR WEAKNESS [None]
